FAERS Safety Report 24667155 (Version 1)
Quarter: 2024Q4

REPORT INFORMATION
  Report Type: Spontaneous
  Country: DE (occurrence: DE)
  Receive Date: 20241126
  Receipt Date: 20241126
  Transmission Date: 20250114
  Serious: Yes (Other)
  Sender: MALLINCKRODT
  Company Number: DE-MALLINCKRODT-MNK202407100

PATIENT
  Age: 25 Year
  Sex: Male

DRUGS (8)
  1. UVADEX [Suspect]
     Active Substance: METHOXSALEN
     Indication: Chronic graft versus host disease in eye
     Dosage: UNKNOWN
     Route: 050
  2. UVADEX [Suspect]
     Active Substance: METHOXSALEN
     Indication: Chronic graft versus host disease in liver
  3. FINGOLIMOD [Concomitant]
     Active Substance: FINGOLIMOD
     Dosage: UNKNOWN
  4. AXATILIMAB [Concomitant]
     Active Substance: AXATILIMAB
  5. ALDESLEUKIN [Concomitant]
     Active Substance: ALDESLEUKIN
     Dosage: UNKNOWN
  6. METHYLPREDNISOLONE [Concomitant]
     Active Substance: METHYLPREDNISOLONE
     Dosage: UNKNOWN
  7. METHYLPREDNISOLONE [Concomitant]
     Active Substance: METHYLPREDNISOLONE
     Dosage: UNKNOWN (TAPERED DOSE)
  8. BELUMOSUDIL [Concomitant]
     Active Substance: BELUMOSUDIL
     Dosage: UNKNOWN

REACTIONS (5)
  - COVID-19 [Unknown]
  - Chronic graft versus host disease [Unknown]
  - Nervous system disorder [Unknown]
  - Disease progression [Unknown]
  - Product use in unapproved indication [Unknown]
